FAERS Safety Report 17263185 (Version 1)
Quarter: 2020Q1

REPORT INFORMATION
  Report Type: Spontaneous
  Country: US (occurrence: US)
  Receive Date: 20200111
  Receipt Date: 20200111
  Transmission Date: 20200409
  Serious: Yes (Disabling)
  Sender: FDA-Public Use
  Company Number: None

PATIENT
  Age: 72 Year
  Sex: Female
  Weight: 108 kg

DRUGS (1)
  1. OXYBUTININ CHLORIDE ER 24HR 5 MG TAB [Suspect]
     Active Substance: OXYBUTYNIN CHLORIDE
     Indication: URINARY INCONTINENCE
     Dosage: ?          QUANTITY:90 TABLET(S);?
     Route: 048
     Dates: start: 20191120

REACTIONS (3)
  - Drug ineffective [None]
  - Manufacturing materials issue [None]
  - Product substitution issue [None]

NARRATIVE: CASE EVENT DATE: 20200110
